FAERS Safety Report 11740261 (Version 2)
Quarter: 2015Q4

REPORT INFORMATION
  Report Type: Spontaneous
  Country: US (occurrence: US)
  Receive Date: 20151110
  Receipt Date: 20151120
  Transmission Date: 20160304
  Serious: Yes (Hospitalization)
  Sender: FDA-Public Use
  Company Number: US-ELI_LILLY_AND_COMPANY-US201202003588

PATIENT
  Age: 69 Year
  Sex: Female

DRUGS (22)
  1. PRAVACHOL [Concomitant]
     Active Substance: PRAVASTATIN SODIUM
     Dosage: UNK
  2. OMEGA 3 FISH OIL [Concomitant]
     Active Substance: FISH OIL\OMEGA-3 FATTY ACIDS
  3. PRILOSEC [Concomitant]
     Active Substance: OMEPRAZOLE MAGNESIUM
     Dosage: 20 MG, UNK
  4. ASPIRIN. [Concomitant]
     Active Substance: ASPIRIN
     Dosage: 81 MG, UNK
  5. ZOLOFT [Concomitant]
     Active Substance: SERTRALINE HYDROCHLORIDE
     Dosage: 100 MG, UNK
  6. DILANTIN [Concomitant]
     Active Substance: PHENYTOIN
     Dosage: 100 MG, UNK
  7. KLONOPIN [Concomitant]
     Active Substance: CLONAZEPAM
     Dosage: 1 MG, UNK
  8. FORTEO [Suspect]
     Active Substance: TERIPARATIDE
     Dosage: 20 UG, QD
  9. ZAROXOLYN [Concomitant]
     Active Substance: METOLAZONE
     Dosage: UNK, PRN
  10. OXYGEN. [Concomitant]
     Active Substance: OXYGEN
     Dosage: 2.5 LITERS IN DAYTIME
  11. FORTEO [Suspect]
     Active Substance: TERIPARATIDE
     Indication: OSTEOPOROSIS
     Dosage: 20 UG, QD
     Route: 058
     Dates: start: 201108
  12. LASIX [Concomitant]
     Active Substance: FUROSEMIDE
     Dosage: 40 MG, UNK
  13. VITAMIN D [Concomitant]
     Active Substance: CHOLECALCIFEROL
     Dosage: 50000 U, UNK
  14. AMBIEN [Concomitant]
     Active Substance: ZOLPIDEM TARTRATE
     Dosage: 10 MG, UNK
  15. OXYGEN. [Concomitant]
     Active Substance: OXYGEN
     Dosage: 3 LITERS, AT NIGHT
  16. FORTEO [Suspect]
     Active Substance: TERIPARATIDE
     Dosage: 20 UG, QD
     Route: 058
  17. FORTEO [Suspect]
     Active Substance: TERIPARATIDE
     Dosage: 20 UG, QD
     Route: 058
  18. CALCIUM +VIT D [Concomitant]
     Active Substance: CALCIUM\VITAMIN D
     Dosage: 2 PER DAY
  19. POTASSIUM [Concomitant]
     Active Substance: POTASSIUM
     Dosage: 10 DF, UNK
  20. PHENERGAN [Concomitant]
     Active Substance: PROMETHAZINE HYDROCHLORIDE
  21. ALLERGY MEDICATION [Concomitant]
     Active Substance: DIPHENHYDRAMINE HYDROCHLORIDE
     Dosage: UNK, WEEKLY (1/W)
  22. PERCOCET [Concomitant]
     Active Substance: ACETAMINOPHEN\OXYCODONE HYDROCHLORIDE
     Dosage: 15 MG, EVERY 4 TO 6 HOURS

REACTIONS (15)
  - Contusion [Unknown]
  - Sinusitis [Unknown]
  - Cough [Unknown]
  - Pyrexia [Unknown]
  - Foot fracture [Unknown]
  - Pneumonia [Unknown]
  - Swelling [Unknown]
  - Productive cough [Unknown]
  - Injection site bruising [Unknown]
  - Oropharyngeal pain [Unknown]
  - Malaise [Unknown]
  - Fall [Unknown]
  - Pneumonia [Unknown]
  - Breath sounds abnormal [Unknown]
  - Oedema [Unknown]

NARRATIVE: CASE EVENT DATE: 2012
